FAERS Safety Report 4838186-7 (Version None)
Quarter: 2005Q4

REPORT INFORMATION
  Report Type: 
  Country: None (occurrence: None)
  Receive Date: 20051122
  Receipt Date: 20051108
  Transmission Date: 20060501
  Serious: Yes (Death)
  Sender: FDA-Public Use
  Company Number: TNZFR200500102

PATIENT
  Age: 69 Year
  Sex: Male
  Weight: 77 kg

DRUGS (5)
  1. INNOHEP [Suspect]
     Indication: PULMONARY EMBOLISM
     Dosage: 14000 IU (14000 IU,ONCE DAILY), SUBCUTANEOUS
     Route: 058
     Dates: start: 20050824, end: 20050828
  2. PREVISCAN (FLUINDIONE) (20 MILLIGRAM, TABLETS) [Suspect]
     Indication: PULMONARY EMBOLISM
     Dosage: 5 MG ON ODD DATES AND 10 MG ON EVEN DATES, ORAL
     Route: 048
     Dates: start: 20050824, end: 20050913
  3. DUPHALAC [Suspect]
     Dosage: ORAL
     Route: 048
  4. PARACETAMOL/CODEINE (PANADEINE CO) [Suspect]
     Dosage: ORAL
     Route: 048
  5. ALPRAZOLAM [Suspect]
     Dosage: 0.25 MG, ORAL
     Route: 048

REACTIONS (19)
  - BACK PAIN [None]
  - BLOOD LACTATE DEHYDROGENASE INCREASED [None]
  - CARDIO-RESPIRATORY ARREST [None]
  - CHEST PAIN [None]
  - CHILLS [None]
  - CONDITION AGGRAVATED [None]
  - CREPITATIONS [None]
  - DYSPNOEA [None]
  - HEART RATE INCREASED [None]
  - HYPERHIDROSIS [None]
  - HYPOCAPNIA [None]
  - HYPOXIA [None]
  - METASTASES TO BONE [None]
  - METASTASES TO BONE MARROW [None]
  - OXYGEN SATURATION DECREASED [None]
  - PYREXIA [None]
  - RASH MACULAR [None]
  - RESPIRATORY RATE INCREASED [None]
  - THROMBOCYTOPENIA [None]
